FAERS Safety Report 6331087-7 (Version None)
Quarter: 2009Q3

REPORT INFORMATION
  Report Type: 
  Country: None (occurrence: None)
  Receive Date: 20090827
  Receipt Date: 20090811
  Transmission Date: 20100115
  Serious: No
  Sender: FDA-Public Use
  Company Number: BR-ROCHE-650742

PATIENT
  Sex: Male
  Weight: 50 kg

DRUGS (5)
  1. TAMIFLU [Suspect]
     Dosage: DOSE: 2 CAP/DAY DILUTED IN 10 ML OF WATER
     Route: 048
     Dates: start: 20090808
  2. CLONAZEPAM [Concomitant]
     Indication: CONVULSION
     Route: 048
  3. VALPROIC ACID [Concomitant]
     Indication: CONVULSION
     Route: 048
  4. CARBAMAZEPINE [Concomitant]
     Indication: CONVULSION
     Route: 048
  5. ZINNAT [Concomitant]
     Indication: ANTIBIOTIC THERAPY
     Route: 048

REACTIONS (2)
  - DRUG ADMINISTRATION ERROR [None]
  - NO ADVERSE EVENT [None]
